FAERS Safety Report 14381284 (Version 1)
Quarter: 2018Q1

REPORT INFORMATION
  Report Type: Spontaneous
  Country: US (occurrence: US)
  Receive Date: 20180111
  Receipt Date: 20180111
  Transmission Date: 20180509
  Serious: No
  Sender: FDA-Public Use
  Company Number: None

PATIENT
  Age: 62 Year
  Sex: Female

DRUGS (18)
  1. MUPIROCIN. [Concomitant]
     Active Substance: MUPIROCIN
  2. MIRTAZAPINE. [Concomitant]
     Active Substance: MIRTAZAPINE
  3. HYDROXYZ HCL [Concomitant]
     Active Substance: HYDROXYZINE HYDROCHLORIDE
  4. NAFTIN [Concomitant]
     Active Substance: NAFTIFINE HYDROCHLORIDE
  5. ADVAIR HFA [Concomitant]
     Active Substance: FLUTICASONE PROPIONATE\SALMETEROL XINAFOATE
  6. OCALIVA [Suspect]
     Active Substance: OBETICHOLIC ACID
     Indication: PRIMARY BILIARY CHOLANGITIS
     Route: 048
     Dates: start: 20170516
  7. HYDROCHLOROT [Concomitant]
     Active Substance: HYDROCHLOROTHIAZIDE
  8. CELECOXIB. [Concomitant]
     Active Substance: CELECOXIB
  9. CELEBREX [Concomitant]
     Active Substance: CELECOXIB
  10. FLUOCINONIDE. [Concomitant]
     Active Substance: FLUOCINONIDE
  11. FAMOTIDINE. [Concomitant]
     Active Substance: FAMOTIDINE
  12. URSODIOL. [Concomitant]
     Active Substance: URSODIOL
  13. TRAIAMCINOLON [Concomitant]
  14. CALCIUM [Concomitant]
     Active Substance: CALCIUM
  15. LEVOXYL [Concomitant]
     Active Substance: LEVOTHYROXINE SODIUM
  16. DOXEPIN HCL [Concomitant]
     Active Substance: DOXEPIN HYDROCHLORIDE
  17. CEPHALEXIN. [Concomitant]
     Active Substance: CEPHALEXIN
  18. LEVOTHYROXIN [Concomitant]
     Active Substance: LEVOTHYROXINE

REACTIONS (3)
  - Pruritus [None]
  - Drug ineffective [None]
  - Therapy cessation [None]
